FAERS Safety Report 8894227 (Version 1)
Quarter: 2012Q4

REPORT INFORMATION
  Report Type: 
  Country: US (occurrence: US)
  Receive Date: 20121108
  Receipt Date: 20121108
  Transmission Date: 20130627
  Serious: Yes (Death, Other)
  Sender: FDA-Public Use
  Company Number: US-009507513-1211USA002502

PATIENT
  Sex: Male

DRUGS (3)
  1. VICTRELIS [Suspect]
     Route: 048
  2. PEGINTRON [Suspect]
  3. RIBAVIRIN [Suspect]
     Route: 048

REACTIONS (2)
  - Death [Fatal]
  - Pancreatitis [Not Recovered/Not Resolved]
